FAERS Safety Report 5868513-3 (Version None)
Quarter: 2008Q3

REPORT INFORMATION
  Report Type: 
  Country: None (occurrence: None)
  Receive Date: 20080902
  Receipt Date: 20080902
  Transmission Date: 20090109
  Serious: Yes (Life-Threatening, Hospitalization, Disabling)
  Sender: FDA-Public Use
  Company Number: None

PATIENT
  Sex: Male
  Weight: 109.7705 kg

DRUGS (1)
  1. BACTRIM [Suspect]
     Indication: STAPHYLOCOCCAL SKIN INFECTION
     Dosage: ONE PILL TWICE DAILY PO
     Route: 048
     Dates: start: 20080710, end: 20080717

REACTIONS (4)
  - BURNS SECOND DEGREE [None]
  - CARDIAC ARREST [None]
  - OEDEMA [None]
  - STEVENS-JOHNSON SYNDROME [None]
